FAERS Safety Report 22175503 (Version 4)
Quarter: 2024Q3

REPORT INFORMATION
  Report Type: Spontaneous
  Country: FR (occurrence: FR)
  Receive Date: 20230405
  Receipt Date: 20240905
  Transmission Date: 20241017
  Serious: Yes (Other)
  Sender: AUROBINDO
  Company Number: FR-PFIZER INC-202300122856

PATIENT
  Age: 4 Year
  Sex: Female

DRUGS (11)
  1. HYDROCORTISONE [Suspect]
     Active Substance: HYDROCORTISONE\HYDROCORTISONE ACETATE
     Indication: Fusarium infection
     Dosage: UNK
     Route: 065
  2. LEVOFLOXACIN [Suspect]
     Active Substance: LEVOFLOXACIN
     Indication: Staphylococcal infection
     Dosage: UNK
     Route: 065
  3. MUPIROCIN [Suspect]
     Active Substance: MUPIROCIN
     Indication: Fusarium infection
     Dosage: UNK
     Route: 061
  4. VORICONAZOLE [Suspect]
     Active Substance: VORICONAZOLE
     Indication: Fusarium infection
     Dosage: UNK
     Route: 048
  5. AMPHOTERICIN B [Suspect]
     Active Substance: AMPHOTERICIN B
     Indication: Fusarium infection
     Dosage: UNK
     Route: 042
  6. POSACONAZOLE [Suspect]
     Active Substance: POSACONAZOLE
     Indication: Fusarium infection
     Dosage: UNK
     Route: 048
  7. AMPHOTERICIN B [Concomitant]
     Active Substance: AMPHOTERICIN B
     Indication: Fusarium infection
     Dosage: UNK
     Route: 065
  8. HYDROCORTISONE [Concomitant]
     Active Substance: HYDROCORTISONE\HYDROCORTISONE ACETATE
     Indication: Fusarium infection
     Dosage: UNK
     Route: 065
  9. LULICONAZOLE [Concomitant]
     Active Substance: LULICONAZOLE
     Indication: Fusarium infection
     Dosage: UNK
     Route: 065
  10. MUPIROCIN [Concomitant]
     Active Substance: MUPIROCIN
     Indication: Fusarium infection
     Dosage: UNK
     Route: 065
  11. VORICONAZOLE [Concomitant]
     Active Substance: VORICONAZOLE
     Indication: Fusarium infection
     Dosage: UNK
     Route: 065

REACTIONS (7)
  - Sleep disorder [Unknown]
  - Decreased appetite [Unknown]
  - Visual impairment [Unknown]
  - Eye disorder [Recovered/Resolved]
  - Drug ineffective [Unknown]
  - Drug intolerance [Unknown]
  - Product use in unapproved indication [Unknown]
